FAERS Safety Report 24962240 (Version 1)
Quarter: 2025Q1

REPORT INFORMATION
  Report Type: Spontaneous
  Country: US (occurrence: US)
  Receive Date: 20250212
  Receipt Date: 20250212
  Transmission Date: 20250409
  Serious: No
  Sender: PFIZER
  Company Number: US-PFIZER INC-202500028302

PATIENT
  Sex: Male

DRUGS (2)
  1. ELREXFIO [Suspect]
     Active Substance: ELRANATAMAB-BCMM
  2. DEXAMETHASONE [Concomitant]
     Active Substance: DEXAMETHASONE

REACTIONS (1)
  - Oedema [Unknown]
